FAERS Safety Report 7628883-2 (Version None)
Quarter: 2011Q3

REPORT INFORMATION
  Report Type: 
  Country: None (occurrence: None)
  Receive Date: 20110722
  Receipt Date: 20110719
  Transmission Date: 20111222
  Serious: Yes (Death, Hospitalization)
  Sender: FDA-Public Use
  Company Number: DE-CELGENEUS-062-21880-10042024

PATIENT
  Age: 76 Year
  Sex: Male

DRUGS (18)
  1. REVLIMID [Suspect]
     Route: 048
     Dates: start: 20100204, end: 20100201
  2. FERRLECIT [Concomitant]
     Dosage: 19.2 MILLILITER
     Route: 065
     Dates: start: 20100205
  3. DEXAMETHASONE [Concomitant]
     Route: 065
     Dates: start: 20100203
  4. DEXAMETHASONE [Concomitant]
     Route: 065
     Dates: start: 20100129
  5. APROVEL [Concomitant]
     Route: 065
     Dates: start: 20091222
  6. FLUPIRTINE [Concomitant]
     Route: 065
     Dates: start: 20091229
  7. FLUVASTATIN SODIUM [Concomitant]
     Dosage: 100
     Route: 048
     Dates: start: 20091222
  8. EPOETIN [Concomitant]
     Dosage: 2.4 MILLILITER
     Route: 065
     Dates: start: 20100205
  9. ALLOPURINOL [Concomitant]
     Route: 048
     Dates: start: 20100129
  10. ASPIRIN [Concomitant]
     Route: 065
     Dates: start: 20091222
  11. TRAMADOL HCL [Concomitant]
     Route: 065
     Dates: start: 20100130
  12. BISOPROLOL FUMARATE [Concomitant]
     Route: 065
     Dates: start: 20091222
  13. OMNIC OCAS [Concomitant]
     Route: 065
     Dates: start: 20091222
  14. PLAVIX [Concomitant]
     Route: 065
     Dates: start: 20091222
  15. VOLTAREN [Concomitant]
     Route: 065
     Dates: start: 20091222
  16. ATORVASTATIN [Concomitant]
     Route: 065
     Dates: start: 20091222
  17. NORVASC [Concomitant]
     Route: 065
     Dates: start: 20091222
  18. RANITIDINE [Concomitant]
     Route: 065
     Dates: start: 20091216

REACTIONS (1)
  - DEATH [None]
